FAERS Safety Report 4354543-X (Version None)
Quarter: 2004Q2

REPORT INFORMATION
  Report Type: 
  Country: None (occurrence: None)
  Receive Date: 20040506
  Receipt Date: 20040506
  Transmission Date: 20050107
  Serious: Yes (Other)
  Sender: FDA-Public Use
  Company Number: None

PATIENT
  Sex: Female
  Weight: 79.3795 kg

DRUGS (3)
  1. FLUOXETINE [Suspect]
     Indication: EMOTIONAL DISORDER
     Dosage: 20 MG ONE DAILY
     Dates: start: 20010801
  2. FLUOXETINE [Suspect]
     Indication: INJURY
     Dosage: 20 MG ONE DAILY
     Dates: start: 20010801
  3. FLUOXETINE [Suspect]
     Indication: PAIN
     Dosage: 20 MG ONE DAILY
     Dates: start: 20010801

REACTIONS (3)
  - DIZZINESS [None]
  - FATIGUE [None]
  - PHARMACEUTICAL PRODUCT COMPLAINT [None]
